FAERS Safety Report 7157006-1 (Version None)
Quarter: 2010Q4

REPORT INFORMATION
  Report Type: 
  Country: None (occurrence: None)
  Receive Date: 20101214
  Receipt Date: 20100412
  Transmission Date: 20110411
  Serious: No
  Sender: FDA-Public Use
  Company Number: US-ASTRAZENECA-2010SE03308

PATIENT
  Age: 28591 Day
  Sex: Male
  Weight: 88.9 kg

DRUGS (7)
  1. CRESTOR [Suspect]
     Indication: CEREBROVASCULAR ACCIDENT
     Route: 048
     Dates: start: 20090501, end: 20091202
  2. LOTRIL [Concomitant]
  3. TRIMOLOL [Concomitant]
  4. CENTRUM SILVER [Concomitant]
  5. PRESERVISION VITAMIN [Concomitant]
  6. MEGAFED [Concomitant]
  7. PREVACID [Concomitant]

REACTIONS (1)
  - POLYMYALGIA RHEUMATICA [None]
